FAERS Safety Report 23778413 (Version 1)
Quarter: 2024Q2

REPORT INFORMATION
  Report Type: Spontaneous
  Country: US (occurrence: US)
  Receive Date: 20240424
  Receipt Date: 20240424
  Transmission Date: 20240716
  Serious: Yes (Other)
  Sender: FDA-Public Use
  Company Number: US-SA-SAC20240423001251

PATIENT
  Sex: Male
  Weight: 22.22 kg

DRUGS (1)
  1. DUPIXENT [Suspect]
     Active Substance: DUPILUMAB
     Indication: Eosinophilic oesophagitis
     Dosage: 200 MG, QOW
     Route: 058
     Dates: start: 202403, end: 20240411

REACTIONS (6)
  - Seizure [Recovering/Resolving]
  - Dyspnoea [Recovering/Resolving]
  - Dysphagia [Recovering/Resolving]
  - Increased viscosity of upper respiratory secretion [Recovering/Resolving]
  - Hyperhidrosis [Recovering/Resolving]
  - Rash [Recovering/Resolving]

NARRATIVE: CASE EVENT DATE: 20240101
